FAERS Safety Report 8911801 (Version 4)
Quarter: 2013Q3

REPORT INFORMATION
  Report Type: Spontaneous
  Country: US (occurrence: US)
  Receive Date: 20121115
  Receipt Date: 20130718
  Transmission Date: 20140515
  Serious: Yes (Other)
  Sender: FDA-Public Use
  Company Number: US-GLAXOSMITHKLINE-A1000336A

PATIENT
  Age: 61 Year
  Sex: Female

DRUGS (2)
  1. ADVAIR [Suspect]
     Indication: CHRONIC OBSTRUCTIVE PULMONARY DISEASE
     Route: 055
     Dates: start: 2011
  2. LIDODERM [Concomitant]

REACTIONS (5)
  - Cataract operation [Not Recovered/Not Resolved]
  - Cataract [Unknown]
  - Vision blurred [Unknown]
  - Visual acuity reduced [Unknown]
  - Increased tendency to bruise [Unknown]
